FAERS Safety Report 9908330 (Version 1)
Quarter: 2014Q1

REPORT INFORMATION
  Report Type: Spontaneous
  Country: US (occurrence: None)
  Receive Date: 20140212
  Receipt Date: 20140212
  Transmission Date: 20141002
  Serious: Yes (Other)
  Sender: FDA-Public Use
  Company Number: None

PATIENT
  Sex: Female
  Weight: 104.33 kg

DRUGS (3)
  1. GENERIC FENTANYL [Suspect]
     Indication: RHEUMATOID ARTHRITIS
     Dates: start: 20100826
  2. GENERIC FENTANYL [Suspect]
     Indication: PAIN
     Dates: start: 20100826
  3. BRAND NAME DURAGESIC [Concomitant]

REACTIONS (1)
  - Drug ineffective [None]
